FAERS Safety Report 12378840 (Version 1)
Quarter: 2016Q2

REPORT INFORMATION
  Report Type: Spontaneous
  Country: US (occurrence: US)
  Receive Date: 20160517
  Receipt Date: 20160517
  Transmission Date: 20160815
  Serious: Yes (Life-Threatening)
  Sender: FDA-Public Use
  Company Number: US-FLEET LABORATORIES-1052358

PATIENT
  Age: 3 Year
  Sex: Male

DRUGS (12)
  1. ALOE BARBADENSIS LEAF JUICE [Suspect]
     Active Substance: ALOE VERA LEAF
     Route: 050
     Dates: start: 201603, end: 201603
  2. PECTIN [Suspect]
     Active Substance: PECTIN
     Route: 050
     Dates: start: 201603, end: 201603
  3. CHAMOMILLA RECUTITA (MATRICARIA) EXTRACT [Suspect]
     Active Substance: MATRICARIA RECUTITA
     Route: 050
     Dates: start: 201603, end: 201603
  4. CLARITIN [Concomitant]
     Active Substance: LORATADINE
  5. XYLITOL [Suspect]
     Active Substance: XYLITOL
     Route: 050
     Dates: start: 201603, end: 201603
  6. VITAMIN C [Suspect]
     Active Substance: ASCORBIC ACID
     Route: 050
     Dates: start: 201603, end: 201603
  7. VITAMIN E [Suspect]
     Active Substance: .ALPHA.-TOCOPHEROL
     Route: 050
     Dates: start: 201603, end: 201603
  8. LACTIC ACID. [Suspect]
     Active Substance: LACTIC ACID
     Route: 050
     Dates: start: 201603, end: 201603
  9. PEDIA-LAX (GLYCERIN) [Suspect]
     Active Substance: GLYCERIN
     Indication: CONSTIPATION
     Route: 054
     Dates: start: 201603, end: 201603
  10. HYDOXYETHYL CELLULOSE [Suspect]
     Active Substance: HYDROXYETHYL CELLULOSE
     Route: 050
     Dates: start: 201603, end: 201603
  11. ALOE VERA [Suspect]
     Active Substance: ALOE VERA LEAF
     Route: 050
     Dates: start: 201603, end: 201603
  12. PHENOXYETHANOL [Suspect]
     Active Substance: PHENOXYETHANOL
     Route: 050
     Dates: start: 201603, end: 201603

REACTIONS (4)
  - Anaphylactic reaction [Recovered/Resolved]
  - Cough [Recovered/Resolved]
  - Lethargy [Recovered/Resolved]
  - Rash generalised [Recovered/Resolved]

NARRATIVE: CASE EVENT DATE: 201603
